FAERS Safety Report 10723641 (Version 2)
Quarter: 2015Q1

REPORT INFORMATION
  Report Type: Spontaneous
  Country: US (occurrence: None)
  Receive Date: 20150114
  Receipt Date: 20150120
  Transmission Date: 20150721
  Serious: Yes (Hospitalization, Other)
  Sender: FDA-Public Use
  Company Number: ADR-2015-00044

PATIENT
  Age: 53 Year
  Sex: Male

DRUGS (2)
  1. BACLOFEN. [Suspect]
     Active Substance: BACLOFEN
     Indication: MUSCLE SPASTICITY
  2. BACLOFEN. [Suspect]
     Active Substance: BACLOFEN
     Dosage: 10 MG TID PRN

REACTIONS (4)
  - Implant site infection [None]
  - Furuncle [None]
  - Implant site discharge [None]
  - Impaired healing [None]

NARRATIVE: CASE EVENT DATE: 20141211
